FAERS Safety Report 15138059 (Version 1)
Quarter: 2018Q3

REPORT INFORMATION
  Report Type: Spontaneous
  Country: IT (occurrence: IT)
  Receive Date: 20180713
  Receipt Date: 20180713
  Transmission Date: 20181010
  Serious: Yes (Other)
  Sender: FDA-Public Use
  Company Number: IT-AUROBINDO-AUR-APL-2018-035503

PATIENT
  Age: 50 Year
  Sex: Male

DRUGS (3)
  1. PACLITAXEL. [Concomitant]
     Active Substance: PACLITAXEL
     Indication: LUNG ADENOCARCINOMA
     Dosage: NOT REPORTED
     Route: 065
  2. CARBOPLATIN CONCENTRATE FOR SOLUTION FOR INFUSION [Suspect]
     Active Substance: CARBOPLATIN
     Indication: LUNG ADENOCARCINOMA
     Dosage: 450 MILLIGRAM
     Route: 041
  3. DEXTROSE. [Concomitant]
     Active Substance: DEXTROSE
     Indication: PRODUCT USED FOR UNKNOWN INDICATION
     Dosage: NOT REPORTED
     Route: 041

REACTIONS (1)
  - Kounis syndrome [Recovered/Resolved]
